FAERS Safety Report 7238106-4 (Version None)
Quarter: 2011Q1

REPORT INFORMATION
  Report Type: 
  Country: None (occurrence: None)
  Receive Date: 20110119
  Receipt Date: 20110119
  Transmission Date: 20110831
  Serious: Yes (Other)
  Sender: FDA-Public Use
  Company Number: None

PATIENT
  Age: 51 Year
  Sex: Male
  Weight: 92.9874 kg

DRUGS (1)
  1. ALCOHOL PREP PAD TRIAD [Suspect]
     Indication: INJECTION
     Dosage: DAILY
     Dates: start: 20080901, end: 20110113

REACTIONS (1)
  - CELLULITIS [None]
